FAERS Safety Report 5159768-1 (Version None)
Quarter: 2006Q4

REPORT INFORMATION
  Report Type: 
  Country: None (occurrence: None)
  Receive Date: 20061129
  Receipt Date: 20051121
  Transmission Date: 20070319
  Serious: Yes (Other)
  Sender: FDA-Public Use
  Company Number: US-GLAXOSMITHKLINE-A0583481A

PATIENT
  Age: 28 Year
  Sex: Female

DRUGS (2)
  1. WELLBUTRIN SR [Suspect]
     Indication: DEPRESSION
     Route: 048
     Dates: start: 20050830
  2. SSRI [Concomitant]

REACTIONS (4)
  - GRAND MAL CONVULSION [None]
  - HEAD INJURY [None]
  - SYNCOPE [None]
  - WEIGHT DECREASED [None]
